FAERS Safety Report 20339797 (Version 1)
Quarter: 2022Q1

REPORT INFORMATION
  Report Type: Spontaneous
  Country: GB (occurrence: GB)
  Receive Date: 20220117
  Receipt Date: 20220117
  Transmission Date: 20220423
  Serious: Yes (Life-Threatening, Other)
  Sender: FDA-Public Use
  Company Number: None

PATIENT
  Age: 56 Year
  Sex: Female
  Weight: 74 kg

DRUGS (2)
  1. DICLOFENAC [Suspect]
     Active Substance: DICLOFENAC
     Dosage: 50MG 2 TO 3 TIMES DAILY
     Dates: start: 20180101, end: 20210930
  2. LANSOPRAZOLE [Concomitant]
     Active Substance: LANSOPRAZOLE

REACTIONS (5)
  - Dysphonia [Unknown]
  - Gastric ulcer [Not Recovered/Not Resolved]
  - Choking [Unknown]
  - Dysphagia [Unknown]
  - Pharyngo-oesophageal diverticulum [Unknown]

NARRATIVE: CASE EVENT DATE: 20210301
